FAERS Safety Report 12607407 (Version 1)
Quarter: 2016Q3

REPORT INFORMATION
  Report Type: Spontaneous
  Country: US (occurrence: US)
  Receive Date: 20160729
  Receipt Date: 20160729
  Transmission Date: 20161109
  Serious: Yes (Other)
  Sender: FDA-Public Use
  Company Number: US-MYLANLABS-2015M1009464

PATIENT

DRUGS (7)
  1. OFATUMUMAB [Suspect]
     Active Substance: OFATUMUMAB
     Dosage: 173 MG/M2 AT WEEK 1, THEN INCREASED
     Route: 042
  2. BORTEZOMIB [Suspect]
     Active Substance: BORTEZOMIB
     Dosage: 1.3 MG/M2 WEEKLY AT WEEKS 1-4 AND 9-12
     Route: 042
  3. OFATUMUMAB [Suspect]
     Active Substance: OFATUMUMAB
     Dosage: 1160 MG/M2 FOR WEEKS 2-4 AND THEN EVERY 4 WEEKS; LATER RECEIVED MAINTENANCE DOSE
     Route: 042
  4. METHOTREXATE. [Suspect]
     Active Substance: METHOTREXATE
     Dosage: 0.5 MG/KG WEEKLY
     Route: 048
  5. COTRIMOXAZOLE [Concomitant]
     Active Substance: SULFAMETHOXAZOLE\TRIMETHOPRIM
     Indication: ANTIBIOTIC PROPHYLAXIS
     Dosage: WEEKLY
     Route: 065
  6. IMMUNE GLOBULIN [Suspect]
     Active Substance: HUMAN IMMUNOGLOBULIN G
     Dosage: 500 MG/KG EVERY 4 WEEKS
     Route: 042
  7. OFATUMUMAB [Suspect]
     Active Substance: OFATUMUMAB
     Dosage: 1160 MG/M2 FOR EVERY 12 WEEKS FOR 52 WEEKS
     Route: 042

REACTIONS (1)
  - Hypokalaemia [Recovered/Resolved]
